FAERS Safety Report 9262089 (Version 2)
Quarter: 2013Q2

REPORT INFORMATION
  Report Type: Spontaneous
  Country: BR (occurrence: BR)
  Receive Date: 20130430
  Receipt Date: 20130515
  Transmission Date: 20140414
  Serious: Yes (Other)
  Sender: FDA-Public Use
  Company Number: BR-ABBOTT-13X-020-1080539-00

PATIENT
  Age: 15 Year
  Sex: Male
  Weight: 96 kg

DRUGS (3)
  1. DEPAKOTE ER [Suspect]
     Indication: EPILEPSY
     Dosage: 1 TABLET IN THE MORNING/ 1 AT NIGHT
     Route: 048
     Dates: start: 20130201
  2. TRILEPTAL [Concomitant]
     Indication: PRODUCT USED FOR UNKNOWN INDICATION
     Dates: start: 20120825, end: 20130201
  3. TRILEPTAL [Concomitant]
     Dates: start: 20130201

REACTIONS (8)
  - Epilepsy [Recovered/Resolved]
  - Epilepsy [Unknown]
  - Convulsion [Not Recovered/Not Resolved]
  - Drooling [Recovered/Resolved]
  - Hypoglycaemia [Unknown]
  - Bulimia nervosa [Unknown]
  - Insomnia [Unknown]
  - Drug ineffective [Unknown]
